FAERS Safety Report 10251374 (Version 1)
Quarter: 2014Q2

REPORT INFORMATION
  Report Type: Spontaneous
  Country: HK (occurrence: HK)
  Receive Date: 20140622
  Receipt Date: 20140622
  Transmission Date: 20141212
  Serious: Yes (Other)
  Sender: FDA-Public Use
  Company Number: HK-AMGEN-HKGSP2014046006

PATIENT
  Sex: Male

DRUGS (1)
  1. ENBREL [Suspect]
     Indication: RHEUMATOID ARTHRITIS
     Dosage: 50 MG, WEEKLY
     Route: 065
     Dates: start: 20140321, end: 2014

REACTIONS (2)
  - Tumour invasion [Unknown]
  - Skin ulcer [Not Recovered/Not Resolved]
